FAERS Safety Report 11466855 (Version 3)
Quarter: 2016Q1

REPORT INFORMATION
  Report Type: Spontaneous
  Country: CA (occurrence: CA)
  Receive Date: 20150908
  Receipt Date: 20160217
  Transmission Date: 20160525
  Serious: Yes (Hospitalization, Other)
  Sender: FDA-Public Use
  Company Number: CA-ROCHE-1631157

PATIENT
  Age: 65 Year
  Sex: Male

DRUGS (9)
  1. UNIPHYL [Concomitant]
     Active Substance: THEOPHYLLINE ANHYDROUS
  2. XOLAIR [Suspect]
     Active Substance: OMALIZUMAB
     Indication: ASTHMA
     Route: 058
     Dates: start: 20130124
  3. PREDNISONE. [Suspect]
     Active Substance: PREDNISONE
     Indication: MALAISE
     Route: 065
  4. PREDNISONE. [Suspect]
     Active Substance: PREDNISONE
     Indication: ASTHMA
  5. ADVAIR HFA [Concomitant]
     Active Substance: FLUTICASONE PROPIONATE\SALMETEROL XINAFOATE
  6. SINGULAIR [Concomitant]
     Active Substance: MONTELUKAST SODIUM
  7. SPIRIVA [Concomitant]
     Active Substance: TIOTROPIUM BROMIDE MONOHYDRATE
  8. VENTOLIN [Concomitant]
     Active Substance: ALBUTEROL SULFATE
  9. QVAR [Concomitant]
     Active Substance: BECLOMETHASONE DIPROPIONATE

REACTIONS (15)
  - Blood pressure increased [Unknown]
  - Drug effect decreased [Unknown]
  - Urticaria [Not Recovered/Not Resolved]
  - Chest discomfort [Unknown]
  - Dyspnoea [Unknown]
  - Middle insomnia [Unknown]
  - Malaise [Unknown]
  - Discomfort [Unknown]
  - Cough [Unknown]
  - Obstructive airways disorder [Unknown]
  - Asthma [Not Recovered/Not Resolved]
  - Forced vital capacity decreased [Unknown]
  - Restrictive pulmonary disease [Unknown]
  - Wheezing [Unknown]
  - Terminal insomnia [Unknown]

NARRATIVE: CASE EVENT DATE: 20150711
